FAERS Safety Report 23514790 (Version 1)
Quarter: 2024Q1

REPORT INFORMATION
  Report Type: Spontaneous
  Country: CN (occurrence: CN)
  Receive Date: 20240212
  Receipt Date: 20240212
  Transmission Date: 20240410
  Serious: Yes (Other)
  Sender: FDA-Public Use
  Company Number: CN-009507513-2402CHN003011

PATIENT
  Age: 70 Year
  Sex: Female
  Weight: 53 kg

DRUGS (1)
  1. JANUMET [Suspect]
     Active Substance: METFORMIN HYDROCHLORIDE\SITAGLIPTIN PHOSPHATE
     Indication: Diabetes mellitus management
     Dosage: 50 MG, QD
     Route: 048
     Dates: start: 20240130, end: 20240202

REACTIONS (5)
  - Type 2 diabetes mellitus [Unknown]
  - Abdominal distension [Recovering/Resolving]
  - Gastrooesophageal reflux disease [Recovering/Resolving]
  - Abdominal pain upper [Recovering/Resolving]
  - Inappropriate schedule of product administration [Unknown]

NARRATIVE: CASE EVENT DATE: 20240101
